FAERS Safety Report 6566682-3 (Version None)
Quarter: 2010Q1

REPORT INFORMATION
  Report Type: 
  Country: None (occurrence: None)
  Receive Date: 20100202
  Receipt Date: 20100125
  Transmission Date: 20100710
  Serious: Yes (Hospitalization)
  Sender: FDA-Public Use
  Company Number: DE-ROCHE-682137

PATIENT
  Sex: Female
  Weight: 79 kg

DRUGS (23)
  1. METHOXY POLYETHYLENE GLYCOL-EPOETIN BETA [Suspect]
     Indication: DRUG USE FOR UNKNOWN INDICATION
     Route: 065
  2. PROGRAF [Suspect]
     Indication: DRUG USE FOR UNKNOWN INDICATION
     Dosage: FREQUENCY: 4-0-3-0
     Route: 048
     Dates: start: 20080822, end: 20091108
  3. PROGRAF [Suspect]
     Dosage: FREQUENCY: 3-0-3-0
     Route: 048
     Dates: start: 20091109
  4. MYFORTIC [Suspect]
     Indication: DRUG USE FOR UNKNOWN INDICATION
     Dosage: FREQUENCY: 1-0-1-0
     Route: 048
     Dates: start: 20071010
  5. FUROSEMID [Suspect]
     Indication: DRUG USE FOR UNKNOWN INDICATION
     Dosage: FREQUENCY: 1-1-0-0
     Route: 048
     Dates: start: 20090822, end: 20091110
  6. FUROSEMID [Suspect]
     Dosage: FREQUENCY: 1-0-1-0
     Route: 048
     Dates: start: 20091111, end: 20091210
  7. FUROSEMID [Suspect]
     Dosage: FREQUENCY: 1-1-0-0
     Route: 048
     Dates: start: 20091211, end: 20100117
  8. FUROSEMID [Suspect]
     Dosage: FREQUENCY: 3-2-1-0
     Route: 048
     Dates: start: 20100118
  9. AMLODIPINE [Suspect]
     Indication: HYPERTENSION
     Route: 048
     Dates: start: 20091020, end: 20091022
  10. AMLODIPINE [Suspect]
     Route: 048
     Dates: start: 20091023, end: 20091211
  11. AMLODIPINE [Suspect]
     Dosage: FREQUENCY: 1-0-1-0
     Route: 048
     Dates: start: 20100118
  12. BLOPRESS [Suspect]
     Indication: HYPERTENSION
     Dosage: FREQUENCY: 0-1-0-0
     Route: 048
     Dates: start: 20070321, end: 20090924
  13. BLOPRESS [Suspect]
     Dosage: FREQUENCY: 1-0-1-0
     Route: 048
     Dates: start: 20090925, end: 20100118
  14. CARDILOL [Suspect]
     Indication: HYPERTENSION
     Dosage: FREQUENCY: 1-0-0-0
     Route: 048
     Dates: start: 20090323, end: 20091018
  15. CARDILOL [Suspect]
     Dosage: FREQUENCY: 1-0-1-0
     Route: 048
     Dates: start: 20091019
  16. L-THYROXIN [Suspect]
     Indication: HYPERPARATHYROIDISM
     Dosage: FREQUENCY: 1-0-0-0
     Route: 048
     Dates: start: 20070320
  17. PANTOPRAZOLE [Suspect]
     Indication: DRUG USE FOR UNKNOWN INDICATION
     Dosage: FREQUENCY: 1-0-0-0
     Route: 048
     Dates: start: 20070320, end: 20091222
  18. EZETROL [Suspect]
     Dosage: FREQUENCY: 0-0-0-1
     Route: 048
     Dates: start: 20070321, end: 20091110
  19. EZETROL [Suspect]
     Dosage: FREQUENCY: 0-0-1-0
     Route: 048
     Dates: start: 20091111, end: 20091222
  20. NOVONORM [Suspect]
     Dosage: FREQUENCY: 1-0-0-0
     Route: 048
     Dates: start: 20090323
  21. DOXAZOSIN MESYLATE [Suspect]
     Indication: HYPERTENSION
     Dosage: FREQUENCY: 1-0-1-0
     Route: 048
     Dates: start: 20091111, end: 20091210
  22. DOXAZOSIN MESYLATE [Suspect]
     Dosage: FREQUENCY: 1-1-1-1
     Route: 048
     Dates: start: 20091211
  23. FERROUS SULFATE TAB [Suspect]
     Dosage: FREQUENCY: 1-0-0-0
     Route: 048
     Dates: start: 20081114, end: 20090821

REACTIONS (1)
  - NEPHROTIC SYNDROME [None]
